FAERS Safety Report 5944647-X (Version None)
Quarter: 2008Q4

REPORT INFORMATION
  Report Type: 
  Country: None (occurrence: None)
  Receive Date: 20081107
  Receipt Date: 20081031
  Transmission Date: 20090506
  Serious: Yes (Other)
  Sender: FDA-Public Use
  Company Number: GB-TEVA-178172ISR

PATIENT
  Age: 72 Year
  Sex: Male

DRUGS (1)
  1. RISPERIDONE [Suspect]
     Indication: DRUG USE FOR UNKNOWN INDICATION
     Route: 048

REACTIONS (4)
  - ANAEMIA MACROCYTIC [None]
  - AUTONOMIC NERVOUS SYSTEM IMBALANCE [None]
  - ORTHOSTATIC HYPOTENSION [None]
  - WEIGHT DECREASED [None]
